FAERS Safety Report 12375256 (Version 2)
Quarter: 2016Q2

REPORT INFORMATION
  Report Type: Report from Study
  Country: GB (occurrence: GB)
  Receive Date: 20160517
  Receipt Date: 20160609
  Transmission Date: 20160815
  Serious: Yes (Death, Hospitalization, Other)
  Sender: FDA-Public Use
  Company Number: GB-AMGEN-GBRSL2016061300

PATIENT
  Age: 85 Year
  Sex: Female
  Weight: 151.47 kg

DRUGS (10)
  1. HYOSCINE BUTYLBROMIDE [Concomitant]
     Active Substance: BUTYLSCOPOLAMINE
  2. PARACETAMOL [Concomitant]
     Active Substance: ACETAMINOPHEN
  3. FYBOGEL [Concomitant]
     Active Substance: PLANTAGO OVATA SEED
  4. SERETIDE [Concomitant]
     Active Substance: FLUTICASONE PROPIONATE\SALMETEROL XINAFOATE
     Dosage: UNK
  5. FUROSEMIDE. [Concomitant]
     Active Substance: FUROSEMIDE
     Indication: OEDEMA PERIPHERAL
  6. ADCAL [Concomitant]
     Active Substance: CALCIUM CARBONATE
     Dosage: UNK
  7. SALBUTAMOL [Concomitant]
     Active Substance: ALBUTEROL
  8. LOPERAMIDE [Concomitant]
     Active Substance: LOPERAMIDE
  9. WARFARIN [Concomitant]
     Active Substance: WARFARIN
     Dosage: UNK
     Dates: start: 20151231, end: 20160107
  10. PROLIA [Suspect]
     Active Substance: DENOSUMAB
     Indication: PRODUCT USED FOR UNKNOWN INDICATION
     Dosage: UNK
     Route: 065

REACTIONS (26)
  - Cardiac failure [Unknown]
  - Lower respiratory tract infection [Unknown]
  - Abdominal pain [Recovered/Resolved]
  - Social avoidant behaviour [Unknown]
  - Depressed mood [Unknown]
  - Weight decreased [Unknown]
  - Death [Fatal]
  - Urinary incontinence [Unknown]
  - C-reactive protein increased [Unknown]
  - Hypervigilance [Unknown]
  - Pleural effusion [Unknown]
  - Decreased appetite [Unknown]
  - C-reactive protein decreased [Unknown]
  - Aphasia [Unknown]
  - Narcolepsy [Unknown]
  - Depression [Unknown]
  - Hypotension [Unknown]
  - Asthenia [Unknown]
  - Lethargy [Unknown]
  - Diarrhoea [Unknown]
  - Mobility decreased [Unknown]
  - Confusional state [Unknown]
  - Hydronephrosis [Unknown]
  - Delirium [Unknown]
  - Abscess [Unknown]
  - Psychomotor retardation [Unknown]

NARRATIVE: CASE EVENT DATE: 2015
